FAERS Safety Report 10263262 (Version 2)
Quarter: 2014Q2

REPORT INFORMATION
  Report Type: Report from Study
  Country: US (occurrence: US)
  Receive Date: 20140626
  Receipt Date: 20140626
  Transmission Date: 20141212
  Serious: Yes (Other)
  Sender: FDA-Public Use
  Company Number: US-MYLANLABS-2012S1001711

PATIENT
  Age: 27 Year
  Sex: Male

DRUGS (10)
  1. CLOZAPINE TABLETS [Suspect]
     Indication: SCHIZOPHRENIA
     Dosage: 200MG AT 7AM, 200MG AT 11AM, 200MG AT 4PM, AND 200MG AT QHS
     Dates: start: 201308, end: 20140131
  2. CLOZAPINE TABLETS [Suspect]
     Indication: SCHIZOPHRENIA
  3. PROLIXIN /00000602/ [Concomitant]
  4. KEPPRA [Concomitant]
  5. DEPAKOTE [Concomitant]
  6. ZONEGRAN [Concomitant]
  7. ATIVAN [Concomitant]
  8. MIRALAX /00754501/ [Concomitant]
  9. SENNA [Concomitant]
  10. COLACE [Concomitant]

REACTIONS (1)
  - Granulocytopenia [Not Recovered/Not Resolved]
